FAERS Safety Report 4834406-3 (Version None)
Quarter: 2005Q4

REPORT INFORMATION
  Report Type: 
  Country: None (occurrence: None)
  Receive Date: 20051122
  Receipt Date: 20050720
  Transmission Date: 20060501
  Serious: Yes (Life-Threatening, Hospitalization, Other)
  Sender: FDA-Public Use
  Company Number: PHNU2005DE02726

PATIENT
  Age: 76 Year
  Sex: Female
  Weight: 92 kg

DRUGS (1)
  1. DIOVAN HCT [Suspect]
     Indication: HYPERTENSION
     Dosage: 80 MG/D
     Dates: start: 19980101, end: 20050720

REACTIONS (8)
  - ANAPHYLACTIC SHOCK [None]
  - ANGIONEUROTIC OEDEMA [None]
  - DYSPHONIA [None]
  - HYPERSENSITIVITY [None]
  - PHARYNGOLARYNGEAL PAIN [None]
  - RESUSCITATION [None]
  - SWELLING FACE [None]
  - SWOLLEN TONGUE [None]
